FAERS Safety Report 10186401 (Version 1)
Quarter: 2014Q2

REPORT INFORMATION
  Report Type: Spontaneous
  Country: US (occurrence: US)
  Receive Date: 20140521
  Receipt Date: 20140521
  Transmission Date: 20141212
  Serious: No
  Sender: FDA-Public Use
  Company Number: US-ASTRAZENECA-2013SE87029

PATIENT
  Age: 30 Year
  Sex: Female
  Weight: 54.4 kg

DRUGS (1)
  1. PULMICORT FLEXHALER [Suspect]
     Indication: ASTHMA
     Dosage: 90 MCG 1 PUFF TWICE A DAY
     Route: 055
     Dates: start: 2012

REACTIONS (2)
  - Asthma [Recovered/Resolved]
  - Off label use [Not Recovered/Not Resolved]
